FAERS Safety Report 10794589 (Version 3)
Quarter: 2015Q2

REPORT INFORMATION
  Report Type: Spontaneous
  Country: US (occurrence: US)
  Receive Date: 20150213
  Receipt Date: 20150415
  Transmission Date: 20150821
  Serious: Yes (Hospitalization, Other)
  Sender: FDA-Public Use
  Company Number: US-UNITED THERAPEUTICS-UNT-2015-001496

PATIENT
  Age: 68 Year
  Sex: Female
  Weight: 87.98 kg

DRUGS (3)
  1. REMODULIN [Suspect]
     Active Substance: TREPROSTINIL
     Indication: PULMONARY ARTERIAL HYPERTENSION
     Dosage: 0.054 ?G/KG, CONTINUING
     Route: 041
     Dates: start: 20090302
  2. REMODULIN [Suspect]
     Active Substance: TREPROSTINIL
     Dosage: 0.054 ?G/KG, CONTINUING
     Route: 041
     Dates: start: 20090302
  3. REMODULIN [Suspect]
     Active Substance: TREPROSTINIL
     Dosage: 0.054 ?G/KG, CONTINUING
     Route: 041

REACTIONS (8)
  - Back pain [Unknown]
  - Diarrhoea [Unknown]
  - Oedema [Unknown]
  - Carotid artery occlusion [Unknown]
  - Blister [Unknown]
  - Cellulitis [Unknown]
  - Fluid overload [Unknown]
  - Diabetes mellitus inadequate control [Unknown]

NARRATIVE: CASE EVENT DATE: 20150205
